FAERS Safety Report 7773500-4 (Version None)
Quarter: 2011Q3

REPORT INFORMATION
  Report Type: 
  Country: None (occurrence: None)
  Receive Date: 20110922
  Receipt Date: 20110919
  Transmission Date: 20111222
  Serious: Yes (Other)
  Sender: FDA-Public Use
  Company Number: CA-ABBOTT-11P-028-0856276-00

PATIENT
  Sex: Female
  Weight: 79.45 kg

DRUGS (8)
  1. PREMARIN [Concomitant]
     Indication: HYSTERECTOMY
     Route: 048
  2. QUESTRAN [Concomitant]
     Indication: CHOLECYSTECTOMY
     Route: 048
  3. ASCORBIC ACID [Concomitant]
     Indication: ROUTINE HEALTH MAINTENANCE
     Route: 048
  4. ANTI-INFLAMMATORY [Concomitant]
     Indication: OSTEOARTHRITIS
     Route: 048
     Dates: start: 20080101
  5. HUMIRA [Suspect]
     Indication: OSTEOARTHRITIS
     Route: 058
     Dates: end: 20100601
  6. MICARDIS [Concomitant]
     Indication: HYPERTENSION
     Route: 048
     Dates: start: 20090101
  7. MULTI-VITAMINS [Concomitant]
     Indication: ROUTINE HEALTH MAINTENANCE
     Route: 048
  8. CALCIUM CARBONATE [Concomitant]
     Indication: ROUTINE HEALTH MAINTENANCE
     Route: 048

REACTIONS (2)
  - OSTEOARTHRITIS [None]
  - BONE EROSION [None]
